FAERS Safety Report 19362778 (Version 4)
Quarter: 2024Q4

REPORT INFORMATION
  Report Type: Report from Study
  Country: JP (occurrence: JP)
  Receive Date: 20210602
  Receipt Date: 20241002
  Transmission Date: 20250115
  Serious: Yes (Death, Life-Threatening, Disabling, Other)
  Sender: NOVARTIS
  Company Number: NVSJ2021JP008217

PATIENT
  Age: 75 Year
  Sex: Male
  Weight: 54 kg

DRUGS (2)
  1. KYMRIAH [Suspect]
     Active Substance: TISAGENLECLEUCEL
     Indication: Diffuse large B-cell lymphoma
     Dosage: FULL DOSE ADMINISTRATION, TOTAL NUMBER OF CELLS ADMINISTERED:8.3 X10^9
     Route: 041
     Dates: start: 20210412, end: 20210412
  2. ETOPOSIDE [Concomitant]
     Active Substance: ETOPOSIDE
     Indication: Product used for unknown indication
     Dosage: 330 MG/M2
     Route: 065
     Dates: start: 20210408

REACTIONS (10)
  - Diffuse large B-cell lymphoma [Fatal]
  - Malignant neoplasm progression [Fatal]
  - Cytomegalovirus viraemia [Unknown]
  - Cytokine release syndrome [Recovered/Resolved]
  - Pyrexia [Recovered/Resolved]
  - Monoplegia [Recovered/Resolved]
  - Neurotoxicity [Recovered/Resolved]
  - Immune effector cell-associated neurotoxicity syndrome [Recovered/Resolved]
  - Lymphocyte count decreased [Unknown]
  - Neutrophil count decreased [Unknown]

NARRATIVE: CASE EVENT DATE: 20210413
